FAERS Safety Report 4423778-X (Version None)
Quarter: 2004Q3

REPORT INFORMATION
  Report Type: 
  Country: None (occurrence: None)
  Receive Date: 20040806
  Receipt Date: 20040716
  Transmission Date: 20050211
  Serious: Yes (Hospitalization)
  Sender: FDA-Public Use
  Company Number: EWC040639454

PATIENT
  Age: 60 Year
  Sex: Female

DRUGS (3)
  1. EVISTA [Suspect]
     Indication: OSTEOPOROSIS
     Dosage: 1 DSG FORM/ 1 DAY
     Dates: start: 20031101
  2. NATECAL (CALCIUM CARBONATE) [Concomitant]
  3. MINERALS NOS [Concomitant]

REACTIONS (4)
  - GINGIVAL SWELLING [None]
  - RIB FRACTURE [None]
  - ROAD TRAFFIC ACCIDENT [None]
  - UPPER LIMB FRACTURE [None]
